FAERS Safety Report 5398511-8 (Version None)
Quarter: 2007Q3

REPORT INFORMATION
  Report Type: 
  Country: None (occurrence: None)
  Receive Date: 20070726
  Receipt Date: 20061120
  Transmission Date: 20080115
  Serious: No
  Sender: FDA-Public Use
  Company Number: US-AMGEN-KDL201091

PATIENT
  Sex: Male
  Weight: 63.6 kg

DRUGS (1)
  1. PROCRIT [Suspect]
     Indication: RENAL FAILURE CHRONIC
     Route: 058
     Dates: start: 20060101

REACTIONS (2)
  - BLOOD CREATININE INCREASED [None]
  - THERAPEUTIC RESPONSE DECREASED [None]
